FAERS Safety Report 15882804 (Version 2)
Quarter: 2019Q1

REPORT INFORMATION
  Report Type: Report from Study
  Country: DE (occurrence: DE)
  Receive Date: 20190129
  Receipt Date: 20190212
  Transmission Date: 20190417
  Serious: Yes (Other)
  Sender: FDA-Public Use
  Company Number: DE-ROCHE-1757697

PATIENT
  Age: 81 Year
  Sex: Male

DRUGS (4)
  1. BEVACIZUMAB. [Suspect]
     Active Substance: BEVACIZUMAB
     Indication: COLORECTAL CANCER METASTATIC
     Route: 042
     Dates: start: 20140108, end: 20140108
  2. BEVACIZUMAB. [Suspect]
     Active Substance: BEVACIZUMAB
     Route: 042
     Dates: start: 20150512, end: 20150512
  3. IRINOTECAN [Concomitant]
     Active Substance: IRINOTECAN
     Route: 042
     Dates: start: 20140108, end: 20150512
  4. FOLINIC ACID [Concomitant]
     Active Substance: LEUCOVORIN
     Indication: COLORECTAL CANCER
     Route: 042
     Dates: start: 20140108, end: 20150512

REACTIONS (5)
  - Dyspepsia [Recovered/Resolved]
  - Fluid retention [Unknown]
  - Constipation [Recovered/Resolved]
  - Ascites [Recovered/Resolved]
  - Diarrhoea [Unknown]

NARRATIVE: CASE EVENT DATE: 20141202
